FAERS Safety Report 12288134 (Version 3)
Quarter: 2016Q3

REPORT INFORMATION
  Report Type: Report from Study
  Country: BR (occurrence: BR)
  Receive Date: 20160420
  Receipt Date: 20160714
  Transmission Date: 20161109
  Serious: Yes (Death, Hospitalization, Other)
  Sender: FDA-Public Use
  Company Number: PHHY2016BR052422

PATIENT
  Sex: Male
  Weight: 70 kg

DRUGS (1)
  1. EXJADE [Suspect]
     Active Substance: DEFERASIROX
     Indication: ANAEMIA
     Dosage: 20 MG/KG, QD (1500 MG ONCE DAILY)
     Route: 048

REACTIONS (3)
  - Anaemia [Recovering/Resolving]
  - Prostate cancer [Unknown]
  - Death [Fatal]
